FAERS Safety Report 6976360-4 (Version None)
Quarter: 2010Q3

REPORT INFORMATION
  Report Type: 
  Country: None (occurrence: None)
  Receive Date: 20100910
  Receipt Date: 20100901
  Transmission Date: 20110219
  Serious: Yes (Hospitalization, Other)
  Sender: FDA-Public Use
  Company Number: US-ASTRAZENECA-2010SE41223

PATIENT
  Age: 56 Year
  Sex: Male
  Weight: 83.5 kg

DRUGS (4)
  1. CRESTOR [Suspect]
     Route: 048
  2. ZINC [Concomitant]
  3. ASCORBIC ACID [Concomitant]
  4. ASPIRIN [Concomitant]

REACTIONS (5)
  - GLUCOSE TOLERANCE IMPAIRED [None]
  - MALIGNANT MELANOMA [None]
  - MEAN PLATELET VOLUME DECREASED [None]
  - POST PROCEDURAL HAEMATOMA [None]
  - POST PROCEDURAL HAEMORRHAGE [None]
